FAERS Safety Report 4916196-9 (Version None)
Quarter: 2006Q1

REPORT INFORMATION
  Report Type: 
  Country: None (occurrence: None)
  Receive Date: 20060113
  Receipt Date: 20051027
  Transmission Date: 20060701
  Serious: No
  Sender: FDA-Public Use
  Company Number: 2005SP003719

PATIENT
  Age: 55 Year
  Sex: Female
  Weight: 56.246 kg

DRUGS (4)
  1. LUNESTA [Suspect]
     Indication: INSOMNIA
     Dosage: 2 MG;HS;ORAL
     Route: 048
     Dates: start: 20051025, end: 20051001
  2. PREMARIN [Concomitant]
  3. DICLOFENAC SODIUM [Concomitant]
  4. OXYBUTYNIN [Concomitant]

REACTIONS (2)
  - ABNORMAL DREAMS [None]
  - DYSGEUSIA [None]
